FAERS Safety Report 11135469 (Version 2)
Quarter: 2015Q3

REPORT INFORMATION
  Report Type: Spontaneous
  Country: US (occurrence: None)
  Receive Date: 20150521
  Receipt Date: 20150825
  Transmission Date: 20151125
  Serious: Yes (Other)
  Sender: FDA-Public Use
  Company Number: 2015AP009103

PATIENT
  Age: 17 Year
  Sex: Male
  Weight: 108 kg

DRUGS (6)
  1. DEFERIPRONE [Suspect]
     Active Substance: DEFERIPRONE
     Indication: CHELATION THERAPY
     Dates: start: 20150319, end: 20150506
  2. TYLENOL W/CODEINE NO. 3 (CODEINE PHOSPHATE, PARACETAMOL) [Concomitant]
  3. DEFERIPRONE [Suspect]
     Active Substance: DEFERIPRONE
     Indication: SICKLE CELL ANAEMIA
     Dates: start: 20150319, end: 20150506
  4. IBUPROFEN (IBUPROFEN) [Concomitant]
     Active Substance: IBUPROFEN
  5. MOTRIN [Concomitant]
     Active Substance: IBUPROFEN
  6. HUMAN PAPILLOMA VACCINE (HUMAN PAPILLOMA VACCINE) [Concomitant]

REACTIONS (3)
  - Epididymitis [None]
  - Upper respiratory tract infection [None]
  - Cold type haemolytic anaemia [None]

NARRATIVE: CASE EVENT DATE: 20150506
